FAERS Safety Report 18435565 (Version 1)
Quarter: 2020Q4

REPORT INFORMATION
  Report Type: Spontaneous
  Country: US (occurrence: US)
  Receive Date: 20201028
  Receipt Date: 20201028
  Transmission Date: 20210114
  Serious: No
  Sender: FDA-Public Use
  Company Number: US-BAYER-2020-225628

PATIENT
  Sex: Female

DRUGS (1)
  1. MIRENA [Suspect]
     Active Substance: LEVONORGESTREL
     Indication: NEOPLASM MALIGNANT
     Dosage: 20 ?G PER DAY CONTINUOUSLY
     Route: 015

REACTIONS (2)
  - Device use issue [None]
  - Off label use of device [None]
